FAERS Safety Report 20988538 (Version 1)
Quarter: 2022Q2

REPORT INFORMATION
  Report Type: Spontaneous
  Country: PL (occurrence: PL)
  Receive Date: 20220621
  Receipt Date: 20220621
  Transmission Date: 20220721
  Serious: Yes (Other)
  Sender: FDA-Public Use
  Company Number: PL-THERAPEUTICSMD-2022TMD00639

PATIENT
  Age: 53 Year
  Sex: Female

DRUGS (2)
  1. BIJUVA [Suspect]
     Active Substance: ESTRADIOL\PROGESTERONE
     Indication: Hormone replacement therapy
     Dosage: 1 CAPSULE, 1X/DAY
  2. METOPROLOL TARTRATE [Concomitant]
     Active Substance: METOPROLOL TARTRATE
     Indication: Product used for unknown indication
     Dosage: UNK; LOW DOSE

REACTIONS (3)
  - Arrhythmia [Unknown]
  - Condition aggravated [Unknown]
  - Anxiety [Unknown]
